FAERS Safety Report 22697621 (Version 5)
Quarter: 2025Q3

REPORT INFORMATION
  Report Type: Report from Study
  Country: US (occurrence: US)
  Receive Date: 20230712
  Receipt Date: 20250716
  Transmission Date: 20251020
  Serious: Yes (Other)
  Sender: TAKEDA
  Company Number: US-TAKEDA-2021TUS076364

PATIENT
  Sex: Female
  Weight: 86 kg

DRUGS (7)
  1. ICATIBANT [Suspect]
     Active Substance: ICATIBANT ACETATE
     Indication: Immune system disorder
  2. ICATIBANT [Suspect]
     Active Substance: ICATIBANT ACETATE
  3. TAKHZYRO [Suspect]
     Active Substance: LANADELUMAB-FLYO
     Indication: Hereditary angioedema
     Dosage: 300 MILLIGRAM, Q2WEEKS
  4. TAKHZYRO [Suspect]
     Active Substance: LANADELUMAB-FLYO
     Indication: Immune system disorder
  5. TAKHZYRO [Suspect]
     Active Substance: LANADELUMAB-FLYO
  6. RYBELSUS [Concomitant]
     Active Substance: SEMAGLUTIDE
  7. MIRENA [Concomitant]
     Active Substance: LEVONORGESTREL

REACTIONS (4)
  - Diabetes mellitus [Unknown]
  - Product dose omission issue [Unknown]
  - Product dose omission in error [Unknown]
  - Hereditary angioedema [Unknown]
